FAERS Safety Report 25056331 (Version 4)
Quarter: 2025Q2

REPORT INFORMATION
  Report Type: Spontaneous
  Country: JP (occurrence: JP)
  Receive Date: 20250310
  Receipt Date: 20250507
  Transmission Date: 20250716
  Serious: Yes (Other)
  Sender: JOHNSON AND JOHNSON
  Company Number: JP-JNJFOC-20250260241

PATIENT
  Age: 5 Decade
  Sex: Female

DRUGS (13)
  1. PALIPERIDONE PALMITATE [Suspect]
     Active Substance: PALIPERIDONE PALMITATE
     Indication: Schizophrenia
     Route: 030
     Dates: start: 202204, end: 2023
  2. PALIPERIDONE PALMITATE [Suspect]
     Active Substance: PALIPERIDONE PALMITATE
     Route: 030
     Dates: start: 202307, end: 2024
  3. PALIPERIDONE PALMITATE [Suspect]
     Active Substance: PALIPERIDONE PALMITATE
     Route: 030
     Dates: start: 202406, end: 20250318
  4. INVEGA [Concomitant]
     Active Substance: PALIPERIDONE
     Indication: Schizophrenia
     Route: 048
     Dates: start: 202008, end: 2020
  5. INVEGA [Concomitant]
     Active Substance: PALIPERIDONE
     Route: 048
     Dates: start: 20250319, end: 20250412
  6. INVEGA [Concomitant]
     Active Substance: PALIPERIDONE
     Route: 048
     Dates: start: 202503
  7. PALIPERIDONE PALMITATE [Concomitant]
     Active Substance: PALIPERIDONE PALMITATE
     Indication: Schizophrenia
     Route: 030
     Dates: start: 202011, end: 2022
  8. PALIPERIDONE PALMITATE [Concomitant]
     Active Substance: PALIPERIDONE PALMITATE
     Route: 030
     Dates: start: 202304, end: 2023
  9. PALIPERIDONE PALMITATE [Concomitant]
     Active Substance: PALIPERIDONE PALMITATE
     Route: 030
     Dates: start: 202404, end: 2024
  10. LORAZEPAM [Concomitant]
     Active Substance: LORAZEPAM
     Indication: Schizophrenia
     Route: 048
     Dates: start: 2018
  11. LORAZEPAM [Concomitant]
     Active Substance: LORAZEPAM
     Route: 048
     Dates: start: 202106, end: 202503
  12. LORAZEPAM [Concomitant]
     Active Substance: LORAZEPAM
     Route: 048
     Dates: start: 202503
  13. REXULTI [Concomitant]
     Active Substance: BREXPIPRAZOLE
     Indication: Schizophrenia
     Route: 065
     Dates: start: 202005, end: 202008

REACTIONS (1)
  - Drug-induced liver injury [Not Recovered/Not Resolved]

NARRATIVE: CASE EVENT DATE: 20250208
